FAERS Safety Report 21682623 (Version 2)
Quarter: 2022Q4

REPORT INFORMATION
  Report Type: Spontaneous
  Country: US (occurrence: US)
  Receive Date: 20221205
  Receipt Date: 20221230
  Transmission Date: 20230113
  Serious: No
  Sender: FDA-Public Use
  Company Number: US-PFIZER INC-PV202200116459

PATIENT
  Age: 56 Year
  Sex: Female

DRUGS (1)
  1. MYCOBUTIN [Suspect]
     Active Substance: RIFABUTIN
     Dosage: 300 MG, DAILY

REACTIONS (2)
  - Illness [Unknown]
  - Weight decreased [Unknown]
